FAERS Safety Report 4532485-4 (Version None)
Quarter: 2004Q4

REPORT INFORMATION
  Report Type: 
  Country: None (occurrence: None)
  Receive Date: 20041220
  Receipt Date: 20041119
  Transmission Date: 20050328
  Serious: Yes (Hospitalization)
  Sender: FDA-Public Use
  Company Number: US-MERCK-0411USA03328

PATIENT
  Age: 70 Year
  Sex: Female
  Weight: 64 kg

DRUGS (2)
  1. HYZAAR [Suspect]
     Route: 048
     Dates: start: 20000101, end: 20040301
  2. HYZAAR [Suspect]
     Route: 048
     Dates: start: 20040301

REACTIONS (11)
  - ANOREXIA [None]
  - BODY TEMPERATURE INCREASED [None]
  - CARDIOMEGALY [None]
  - CHEST PAIN [None]
  - CHILLS [None]
  - COUGH [None]
  - FEELING ABNORMAL [None]
  - PERICARDITIS [None]
  - RESPIRATORY DISORDER [None]
  - SKIN CANCER [None]
  - STREPTOCOCCAL SEROLOGY POSITIVE [None]
